FAERS Safety Report 19639267 (Version 1)
Quarter: 2021Q3

REPORT INFORMATION
  Report Type: Spontaneous
  Country: US (occurrence: US)
  Receive Date: 20210730
  Receipt Date: 20210730
  Transmission Date: 20211014
  Serious: No
  Sender: FDA-Public Use
  Company Number: US-PFIZER INC-2021285458

PATIENT
  Age: 50 Year
  Sex: Female

DRUGS (1)
  1. RIFABUTIN. [Suspect]
     Active Substance: RIFABUTIN
     Dosage: UNK

REACTIONS (1)
  - Drug hypersensitivity [Unknown]
